FAERS Safety Report 14731340 (Version 1)
Quarter: 2018Q2

REPORT INFORMATION
  Report Type: Report from Study
  Country: None (occurrence: US)
  Receive Date: 20180407
  Receipt Date: 20180407
  Transmission Date: 20180711
  Serious: Yes (Other)
  Sender: FDA-Public Use
  Company Number: US-ABBVIE-18P-163-2314963-00

PATIENT
  Age: 11 Month
  Sex: Male
  Weight: 6.7 kg

DRUGS (2)
  1. SYNAGIS [Suspect]
     Active Substance: PALIVIZUMAB
     Indication: ANTIVIRAL PROPHYLAXIS
  2. SYNAGIS [Suspect]
     Active Substance: PALIVIZUMAB
     Indication: BRONCHOPULMONARY DYSPLASIA
     Route: 030
     Dates: start: 20171108

REACTIONS (3)
  - Urticaria [Unknown]
  - Swelling face [Unknown]
  - Angioedema [Unknown]

NARRATIVE: CASE EVENT DATE: 20180202
